FAERS Safety Report 15593056 (Version 1)
Quarter: 2018Q4

REPORT INFORMATION
  Report Type: Spontaneous
  Country: US (occurrence: US)
  Receive Date: 20181102
  Receipt Date: 20181102
  Transmission Date: 20190205
  Serious: No
  Sender: FDA-Public Use
  Company Number: None

PATIENT
  Age: 71 Year
  Sex: Male
  Weight: 49.9 kg

DRUGS (1)
  1. YESCARTA [Suspect]
     Active Substance: AXICABTAGENE CILOLEUCEL
     Indication: DIFFUSE LARGE B-CELL LYMPHOMA
     Dosage: ?          OTHER DOSE:2X10^6 PER KG MAX ;?
     Route: 042
     Dates: start: 20181002

REACTIONS (7)
  - Cardiorenal syndrome [None]
  - Frequent bowel movements [None]
  - Pyrexia [None]
  - Clostridium difficile infection [None]
  - C-reactive protein increased [None]
  - Pancytopenia [None]
  - Abdominal pain [None]
